FAERS Safety Report 23888692 (Version 1)
Quarter: 2024Q2

REPORT INFORMATION
  Report Type: Spontaneous
  Country: US (occurrence: US)
  Receive Date: 20240523
  Receipt Date: 20240523
  Transmission Date: 20240716
  Serious: Yes (Life-Threatening, Hospitalization, Other)
  Sender: FDA-Public Use
  Company Number: US-STERISCIENCE B.V.-2024-ST-000672

PATIENT
  Age: 32 Year
  Sex: Male

DRUGS (9)
  1. MIDAZOLAM [Suspect]
     Active Substance: MIDAZOLAM
     Indication: Tetanus
     Dosage: 10 MILLIGRAM, QH, INFUSION
     Route: 042
  2. PROPOFOL [Suspect]
     Active Substance: PROPOFOL
     Indication: Tetanus
     Dosage: 50 MICROGRAM/KILOGRAM, QMINUTE
     Route: 042
  3. LORAZEPAM [Suspect]
     Active Substance: LORAZEPAM
     Indication: Tetanus
     Dosage: UNK
     Route: 042
  4. TETANUS IMMUNE GLOBULIN (HUMAN) [Suspect]
     Active Substance: HUMAN CLOSTRIDIUM TETANI TOXOID IMMUNE GLOBULIN
     Indication: Tetanus
     Dosage: UNK
     Route: 065
  5. TETANUS TOXOIDS [Suspect]
     Active Substance: TETANUS TOXOIDS
     Indication: Tetanus
     Dosage: UNK
     Route: 065
  6. BACLOFEN [Concomitant]
     Active Substance: BACLOFEN
     Indication: Tetanus
     Dosage: 20 MILLIGRAM, Q6H
     Route: 065
  7. MAGNESIUM [Concomitant]
     Active Substance: MAGNESIUM
     Indication: Tetanus
     Dosage: 1 GRAM, QH
     Route: 065
  8. CISATRACURIUM BESYLATE [Concomitant]
     Active Substance: CISATRACURIUM BESYLATE
     Indication: Tetanus
     Dosage: UNK
     Route: 065
  9. DANTROLENE [Concomitant]
     Active Substance: DANTROLENE
     Indication: Product used for unknown indication
     Dosage: UNK
     Route: 065

REACTIONS (1)
  - Drug ineffective for unapproved indication [Unknown]
